FAERS Safety Report 7531945-1 (Version None)
Quarter: 2011Q2

REPORT INFORMATION
  Report Type: 
  Country: None (occurrence: None)
  Receive Date: 20110607
  Receipt Date: 20110607
  Transmission Date: 20111010
  Serious: Yes (Hospitalization)
  Sender: FDA-Public Use
  Company Number: None

PATIENT
  Age: 81 Year
  Sex: Male
  Weight: 95 kg

DRUGS (1)
  1. ATENOLOL [Suspect]
     Dosage: 100 MG BID PO
     Route: 048
     Dates: end: 20100601

REACTIONS (2)
  - SYNCOPE [None]
  - DIZZINESS [None]
